FAERS Safety Report 18883958 (Version 2)
Quarter: 2021Q3

REPORT INFORMATION
  Report Type: Spontaneous
  Country: US (occurrence: US)
  Receive Date: 20210211
  Receipt Date: 20210816
  Transmission Date: 20211014
  Serious: No
  Sender: FDA-Public Use
  Company Number: US-GILEAD-2021-0515550

PATIENT
  Age: 48 Year
  Sex: Male
  Weight: 91.6 kg

DRUGS (28)
  1. EDLUAR [Concomitant]
     Active Substance: ZOLPIDEM TARTRATE
  2. PERMETHRIN. [Concomitant]
     Active Substance: PERMETHRIN
  3. METHYLPREDNISOLONE. [Concomitant]
     Active Substance: METHYLPREDNISOLONE
  4. LIDOCAINE. [Concomitant]
     Active Substance: LIDOCAINE
  5. HYDROCODONE/ACETAMINOPHEN [Concomitant]
     Active Substance: ACETAMINOPHEN\HYDROCODONE
  6. TRUVADA [Suspect]
     Active Substance: EMTRICITABINE\TENOFOVIR DISOPROXIL FUMARATE
     Indication: HIV INFECTION
     Dosage: UNK
     Route: 048
     Dates: start: 2011
  7. DESCOVY [Concomitant]
     Active Substance: EMTRICITABINE\TENOFOVIR ALAFENAMIDE FUMARATE
  8. CIALIS [Concomitant]
     Active Substance: TADALAFIL
  9. FLUTICASONE. [Concomitant]
     Active Substance: FLUTICASONE
  10. TRAMADOL. [Concomitant]
     Active Substance: TRAMADOL
  11. ASACOL [Concomitant]
     Active Substance: MESALAMINE
  12. TRUVADA [Suspect]
     Active Substance: EMTRICITABINE\TENOFOVIR DISOPROXIL FUMARATE
     Dosage: UNK
     Route: 048
     Dates: start: 200901, end: 2017
  13. OFLOXACIN. [Concomitant]
     Active Substance: OFLOXACIN
  14. CHLORHEXIDINE [Concomitant]
     Active Substance: CHLORHEXIDINE
  15. AZITHROMYCIN ANHYDROUS. [Concomitant]
     Active Substance: AZITHROMYCIN ANHYDROUS
  16. ISENTRESS [Concomitant]
     Active Substance: RALTEGRAVIR POTASSIUM
  17. TIVICAY [Concomitant]
     Active Substance: DOLUTEGRAVIR SODIUM
  18. ZOLPIDEM [Concomitant]
     Active Substance: ZOLPIDEM TARTRATE
  19. TYLENOL [Concomitant]
     Active Substance: ACETAMINOPHEN
  20. VALACYCLOVIR HCL [Concomitant]
     Active Substance: VALACYCLOVIR HYDROCHLORIDE
  21. HALFLYTELY [Concomitant]
     Active Substance: POLYETHYLENE GLYCOL 3350\POTASSIUM CHLORIDE\SODIUM BICARBONATE\SODIUM CHLORIDE
  22. TADALAFIL. [Concomitant]
     Active Substance: TADALAFIL
  23. AMOXICILLIN. [Concomitant]
     Active Substance: AMOXICILLIN
  24. ATORVASTATIN [Concomitant]
     Active Substance: ATORVASTATIN
  25. MINOCYCLINE [Concomitant]
     Active Substance: MINOCYCLINE HYDROCHLORIDE
  26. CIPROFLOXACIN. [Concomitant]
     Active Substance: CIPROFLOXACIN
  27. PATANOL [Concomitant]
     Active Substance: OLOPATADINE HYDROCHLORIDE
  28. MUPIROCIN. [Concomitant]
     Active Substance: MUPIROCIN

REACTIONS (7)
  - Anxiety [Not Recovered/Not Resolved]
  - Bone density decreased [Not Recovered/Not Resolved]
  - Pain [Not Recovered/Not Resolved]
  - Emotional distress [Not Recovered/Not Resolved]
  - Blood creatinine increased [Unknown]
  - Anhedonia [Not Recovered/Not Resolved]
  - Renal impairment [Not Recovered/Not Resolved]

NARRATIVE: CASE EVENT DATE: 201104
